FAERS Safety Report 4919841-7 (Version None)
Quarter: 2006Q1

REPORT INFORMATION
  Report Type: 
  Country: None (occurrence: None)
  Receive Date: 20060217
  Receipt Date: 20060206
  Transmission Date: 20060701
  Serious: Yes (Hospitalization)
  Sender: FDA-Public Use
  Company Number: 2005S1010215

PATIENT
  Age: 47 Year
  Sex: Female

DRUGS (15)
  1. CLOZAPINE [Suspect]
     Indication: SCHIZOPHRENIA, PARANOID TYPE
     Dosage: SEE IMAGE
     Route: 048
     Dates: start: 20051003, end: 20051007
  2. CLOZAPINE [Suspect]
     Indication: SCHIZOPHRENIA, PARANOID TYPE
     Dosage: SEE IMAGE
     Route: 048
     Dates: end: 20051024
  3. CLOZAPINE [Suspect]
     Indication: SCHIZOPHRENIA, PARANOID TYPE
     Dosage: PO
     Route: 048
     Dates: end: 20051024
  4. BUPROPION HYDROCHLORIDE [Concomitant]
  5. CLONAZEPAM [Concomitant]
  6. HYDROCHLOROTHIAZIDE [Concomitant]
  7. LAMOTRIGINE [Concomitant]
  8. LISINOPRIL [Concomitant]
  9. METOPROLOL SUCCINATE [Concomitant]
  10. OMEPRAZOLE [Concomitant]
  11. TRAZODONE [Concomitant]
  12. VENLAFAXINE HCL [Concomitant]
  13. ARIPIPRAZOLE [Concomitant]
  14. IPRATROPIUM BROMIDE [Concomitant]
  15. LANSOPRAZOLE [Concomitant]

REACTIONS (5)
  - ANAEMIA [None]
  - DYSPNOEA [None]
  - LABORATORY TEST INTERFERENCE [None]
  - LEUKOPENIA [None]
  - MENORRHAGIA [None]
